FAERS Safety Report 16939934 (Version 1)
Quarter: 2019Q4

REPORT INFORMATION
  Report Type: Report from Study
  Country: US (occurrence: US)
  Receive Date: 20191021
  Receipt Date: 20191021
  Transmission Date: 20200122
  Serious: Yes (Other)
  Sender: FDA-Public Use
  Company Number: US-BRISTOL-MYERS SQUIBB COMPANY-BMS-2019-097983

PATIENT
  Age: 63 Year
  Sex: Male
  Weight: 82.5 kg

DRUGS (1)
  1. BELATACEPT [Suspect]
     Active Substance: BELATACEPT
     Indication: RENAL TRANSPLANT
     Dosage: 412.5 MILLIGRAM
     Route: 042
     Dates: start: 2019

REACTIONS (3)
  - Infusion site extravasation [Unknown]
  - Swelling [Unknown]
  - Vein rupture [Unknown]

NARRATIVE: CASE EVENT DATE: 20191008
